FAERS Safety Report 5846199-1 (Version None)
Quarter: 2008Q3

REPORT INFORMATION
  Report Type: 
  Country: None (occurrence: None)
  Receive Date: 20080813
  Receipt Date: 20080731
  Transmission Date: 20090109
  Serious: Yes (Other)
  Sender: FDA-Public Use
  Company Number: A-NJ2008-21093

PATIENT
  Age: 72 Year
  Sex: Female
  Weight: 71.7 kg

DRUGS (9)
  1. TRACLEER [Suspect]
     Indication: PULMONARY ARTERIAL HYPERTENSION
     Dosage: 125 MG, QD, ORAL
     Route: 048
     Dates: start: 20070101, end: 20080609
  2. IRON (IRON) [Concomitant]
  3. CILOSTAZOL [Concomitant]
  4. LIPITOR [Concomitant]
  5. ATENOLOL [Concomitant]
  6. ISOSORBIDE (ISOSORBIDE) [Concomitant]
  7. OXYGEN (OXYGEN) [Concomitant]
  8. ASPIRIN [Concomitant]
  9. WARFARIN SODIUM [Concomitant]

REACTIONS (7)
  - ANAEMIA [None]
  - AUTOIMMUNE HEPATITIS [None]
  - HEPATIC CIRRHOSIS [None]
  - HEPATITIS [None]
  - RENAL DISORDER [None]
  - SPLENOMEGALY [None]
  - SYSTEMIC LUPUS ERYTHEMATOSUS [None]
